FAERS Safety Report 8800467 (Version 3)
Quarter: 2014Q3

REPORT INFORMATION
  Report Type: Report from Study
  Country: US (occurrence: US)
  Receive Date: 20120921
  Receipt Date: 20140812
  Transmission Date: 20150326
  Serious: Yes (Death, Hospitalization)
  Sender: FDA-Public Use
  Company Number: US-ROCHE-1102348

PATIENT
  Sex: Female
  Weight: 116 kg

DRUGS (3)
  1. AVASTIN [Suspect]
     Active Substance: BEVACIZUMAB
     Indication: METASTASES TO LIVER
     Route: 042
  2. AVASTIN [Suspect]
     Active Substance: BEVACIZUMAB
     Indication: MALIGNANT NEOPLASM OF UTERINE ADNEXA
  3. AVASTIN [Suspect]
     Active Substance: BEVACIZUMAB
     Indication: OVARIAN CANCER
     Route: 042
     Dates: start: 20081121

REACTIONS (7)
  - Off label use [Unknown]
  - Nausea [Unknown]
  - Peritoneal disorder [Unknown]
  - Vomiting [Unknown]
  - Pyrexia [Unknown]
  - Death [Fatal]
  - Abdominal pain [Unknown]
